FAERS Safety Report 9003850 (Version 1)
Quarter: 2013Q1

REPORT INFORMATION
  Report Type: Spontaneous
  Country: US (occurrence: US)
  Receive Date: 20130108
  Receipt Date: 20130108
  Transmission Date: 20140127
  Serious: No
  Sender: FDA-Public Use
  Company Number: US-GLAXOSMITHKLINE-A0994193A

PATIENT
  Age: 52 Year
  Sex: Female

DRUGS (3)
  1. LOVAZA [Suspect]
     Indication: RHEUMATOID ARTHRITIS
     Dosage: 6CAP PER DAY
     Route: 048
     Dates: start: 2005
  2. ENBREL [Concomitant]
     Dates: end: 201203
  3. METHOTREXATE [Concomitant]
     Dates: end: 201203

REACTIONS (2)
  - Therapeutic response unexpected [Unknown]
  - Off label use [Unknown]
